FAERS Safety Report 9122788 (Version 1)
Quarter: 2013Q1

REPORT INFORMATION
  Report Type: Spontaneous
  Country: US (occurrence: None)
  Receive Date: 20130130
  Receipt Date: 20130130
  Transmission Date: 20140127
  Serious: Yes (Death)
  Sender: FDA-Public Use
  Company Number: B0859732A

PATIENT
  Age: 50 Year
  Sex: Female

DRUGS (4)
  1. BUPROPION HYDROCHLORIDE [Suspect]
  2. HYDROXYZINE [Suspect]
  3. ALPRAZOLAM [Suspect]
  4. DONEPEZIL HCL [Suspect]

REACTIONS (1)
  - Death [None]
